FAERS Safety Report 6635225-8 (Version None)
Quarter: 2010Q1

REPORT INFORMATION
  Report Type: 
  Country: None (occurrence: None)
  Receive Date: 20100315
  Receipt Date: 20100305
  Transmission Date: 20100710
  Serious: Yes (Hospitalization)
  Sender: FDA-Public Use
  Company Number: GXKR2010IT02771

PATIENT
  Sex: Female

DRUGS (1)
  1. AMOXICILLIN [Suspect]
     Indication: TOOTH ABSCESS
     Dosage: 1 DF, ONCE/SINGLE
     Route: 048
     Dates: start: 20080303, end: 20080303

REACTIONS (3)
  - DYSPHAGIA [None]
  - LARYNGEAL OEDEMA [None]
  - RASH [None]
